FAERS Safety Report 10989192 (Version 2)
Quarter: 2015Q3

REPORT INFORMATION
  Report Type: Spontaneous
  Country: IT (occurrence: IT)
  Receive Date: 20150406
  Receipt Date: 20150819
  Transmission Date: 20151125
  Serious: Yes (Hospitalization)
  Sender: FDA-Public Use
  Company Number: IT-AUROBINDO-AUR-APL-2015-02828

PATIENT
  Age: 57 Year
  Sex: Female

DRUGS (4)
  1. ATENOLOL 100 MG [Suspect]
     Active Substance: ATENOLOL
     Indication: ARRHYTHMIA
     Dosage: 100 MG, DAILY
     Route: 048
     Dates: start: 20140101, end: 20150311
  2. TORVAST [Concomitant]
     Active Substance: ATORVASTATIN
     Indication: PRODUCT USED FOR UNKNOWN INDICATION
     Dosage: 10 MG, UNK
     Route: 065
  3. CARDIOASPIRIN [Concomitant]
     Active Substance: ASPIRIN
     Indication: PRODUCT USED FOR UNKNOWN INDICATION
     Dosage: 100 MG, UNK
     Route: 048
  4. MICROSER [Concomitant]
     Active Substance: BETAHISTINE HYDROCHLORIDE
     Indication: VERTIGO
     Dosage: 8 MG, UNK
     Route: 065

REACTIONS (4)
  - Nausea [Recovering/Resolving]
  - Vertigo [Recovering/Resolving]
  - Vomiting [Recovering/Resolving]
  - Sinus bradycardia [Recovering/Resolving]

NARRATIVE: CASE EVENT DATE: 20150311
